FAERS Safety Report 22040856 (Version 2)
Quarter: 2023Q1

REPORT INFORMATION
  Report Type: Report from Study
  Country: CA (occurrence: CA)
  Receive Date: 20230227
  Receipt Date: 20230309
  Transmission Date: 20230418
  Serious: Yes (Hospitalization)
  Sender: FDA-Public Use
  Company Number: CA-MYLANLABS-2023M1020591

PATIENT
  Weight: 52.2 kg

DRUGS (1)
  1. OGIVRI [Suspect]
     Active Substance: TRASTUZUMAB-DKST
     Indication: Breast cancer metastatic
     Dosage: UNK
     Route: 042
     Dates: start: 20220718

REACTIONS (7)
  - Diabetic ketoacidosis [Unknown]
  - Vomiting [Unknown]
  - Nasopharyngitis [Unknown]
  - Cough [Unknown]
  - Disease progression [Unknown]
  - Inappropriate schedule of product administration [Unknown]
  - Therapy non-responder [Unknown]
